FAERS Safety Report 6534818-6 (Version None)
Quarter: 2010Q1

REPORT INFORMATION
  Report Type: 
  Country: None (occurrence: None)
  Receive Date: 20100112
  Receipt Date: 20100104
  Transmission Date: 20100710
  Serious: Yes (Death)
  Sender: FDA-Public Use
  Company Number: US-PFIZER INC-2010001524

PATIENT
  Age: 34 Year
  Sex: Male

DRUGS (2)
  1. ALPRAZOLAM [Suspect]
  2. QUETIAPINE [Suspect]

REACTIONS (1)
  - DRUG ABUSE [None]
